FAERS Safety Report 12436760 (Version 1)
Quarter: 2016Q2

REPORT INFORMATION
  Report Type: Spontaneous
  Country: US (occurrence: US)
  Receive Date: 20160606
  Receipt Date: 20160606
  Transmission Date: 20160815
  Serious: Yes (Hospitalization)
  Sender: FDA-Public Use
  Company Number: US-ROCHE-1768247

PATIENT
  Age: 31 Year

DRUGS (2)
  1. KLONOPIN [Suspect]
     Active Substance: CLONAZEPAM
     Indication: PRODUCT USED FOR UNKNOWN INDICATION
     Route: 065
  2. CYMBALTA [Concomitant]
     Active Substance: DULOXETINE HYDROCHLORIDE
     Route: 065

REACTIONS (18)
  - Frustration tolerance decreased [Unknown]
  - Hypoaesthesia [Unknown]
  - Headache [Unknown]
  - Anxiety [Unknown]
  - Dizziness [Unknown]
  - Paraesthesia [Unknown]
  - Phobia of driving [Unknown]
  - Myocardial infarction [Unknown]
  - Dyspnoea [Unknown]
  - Stress [Unknown]
  - Night sweats [Unknown]
  - Drug withdrawal syndrome [Unknown]
  - Nightmare [Unknown]
  - Panic attack [Unknown]
  - Feeling abnormal [Unknown]
  - Insomnia [Unknown]
  - Separation anxiety disorder [Unknown]
  - Palpitations [Unknown]
